FAERS Safety Report 4732337-0 (Version None)
Quarter: 2005Q3

REPORT INFORMATION
  Report Type: 
  Country: None (occurrence: None)
  Receive Date: 20050721
  Receipt Date: 20050602
  Transmission Date: 20060218
  Serious: No
  Sender: FDA-Public Use
  Company Number: 2005SP001190

PATIENT
  Age: 66 Year
  Sex: Female
  Weight: 68.0396 kg

DRUGS (3)
  1. LUNESTA [Suspect]
     Dosage: 1.5;MG;ORAL, 3 MG; ORAL
     Route: 048
     Dates: start: 20050528, end: 20050501
  2. LUNESTA [Suspect]
     Dosage: 1.5;MG;ORAL, 3 MG; ORAL
     Route: 048
     Dates: start: 20050601, end: 20050601
  3. AMBIEN [Concomitant]

REACTIONS (3)
  - DRY EYE [None]
  - DRY MOUTH [None]
  - DYSGEUSIA [None]
